FAERS Safety Report 11316806 (Version 1)
Quarter: 2015Q3

REPORT INFORMATION
  Report Type: Spontaneous
  Country: US (occurrence: US)
  Receive Date: 20150728
  Receipt Date: 20150728
  Transmission Date: 20151125
  Serious: No
  Sender: FDA-Public Use
  Company Number: US-PFIZER INC-2015240162

PATIENT
  Age: 6 Decade
  Sex: Female
  Weight: 54 kg

DRUGS (2)
  1. MINOXIDIL. [Suspect]
     Active Substance: MINOXIDIL
     Indication: BLOOD PRESSURE ABNORMAL
     Dosage: 7.5 MG, DAILY (5MG TABLET IN THE MORNING AND 2.5MG AT NIGHT)
     Dates: start: 201506, end: 201506
  2. MINOXIDIL. [Suspect]
     Active Substance: MINOXIDIL
     Dosage: 2.5 MG, 2X/DAY
     Dates: start: 201506, end: 201506

REACTIONS (6)
  - Heart rate increased [Recovered/Resolved]
  - Dizziness [Unknown]
  - Hypertrichosis [Not Recovered/Not Resolved]
  - Condition aggravated [Not Recovered/Not Resolved]
  - Hypotension [Recovered/Resolved]
  - Chest discomfort [Recovered/Resolved]

NARRATIVE: CASE EVENT DATE: 201506
